FAERS Safety Report 21594307 (Version 2)
Quarter: 2023Q1

REPORT INFORMATION
  Report Type: Spontaneous
  Country: US (occurrence: None)
  Receive Date: 20221115
  Receipt Date: 20230321
  Transmission Date: 20230418
  Serious: No
  Sender: FDA-Public Use
  Company Number: US-ROCHE-3177775

PATIENT

DRUGS (2)
  1. VABYSMO [Suspect]
     Active Substance: FARICIMAB-SVOA
     Indication: Retinal vein occlusion
     Dosage: ONE DOSE GIVEN ;ONGOING: NO
     Route: 050
  2. EYLEA [Concomitant]
     Active Substance: AFLIBERCEPT
     Indication: Retinal vein occlusion
     Route: 050

REACTIONS (2)
  - Off label use [Unknown]
  - Retinal disorder [Unknown]
